FAERS Safety Report 25958400 (Version 1)
Quarter: 2025Q4

REPORT INFORMATION
  Report Type: Spontaneous
  Country: AU (occurrence: AU)
  Receive Date: 20251024
  Receipt Date: 20251024
  Transmission Date: 20260118
  Serious: Yes (Other)
  Sender: PROVEPHARM
  Company Number: AU-Provepharm-2187252

PATIENT
  Sex: Male

DRUGS (6)
  1. PROVAYBLUE [Suspect]
     Active Substance: METHYLENE BLUE
     Indication: Product used for unknown indication
  2. METARAMINOL [Suspect]
     Active Substance: METARAMINOL
  3. PERINDOPRIL [Suspect]
     Active Substance: PERINDOPRIL
  4. NOREPINEPHRINE BITARTRATE [Suspect]
     Active Substance: NOREPINEPHRINE BITARTRATE
  5. AMLODIPINE [Suspect]
     Active Substance: AMLODIPINE BESYLATE
  6. EPINEPHRINE BITARTRATE [Suspect]
     Active Substance: EPINEPHRINE BITARTRATE

REACTIONS (5)
  - Multiple organ dysfunction syndrome [Unknown]
  - Drug ineffective [Unknown]
  - Toxicity to various agents [Unknown]
  - Overdose [Unknown]
  - Shock [Unknown]
